FAERS Safety Report 18897896 (Version 2)
Quarter: 2021Q2

REPORT INFORMATION
  Report Type: Other
  Country: DE (occurrence: DE)
  Receive Date: 20210216
  Receipt Date: 20210512
  Transmission Date: 20210717
  Serious: Yes (Hospitalization)
  Sender: FDA-Public Use
  Company Number: DE-CELLTRION INC.-2021DE001548

PATIENT

DRUGS (11)
  1. METHOTREXATE. [Suspect]
     Active Substance: METHOTREXATE
     Indication: RHEUMATOID ARTHRITIS
     Dosage: 10 MG, 1/WEEK
     Route: 065
     Dates: start: 201904, end: 202004
  2. ASPIRIN. [Concomitant]
     Active Substance: ASPIRIN
  3. LANTUS [Concomitant]
     Active Substance: INSULIN GLARGINE
  4. METFORMIN [Concomitant]
     Active Substance: METFORMIN HYDROCHLORIDE
  5. DULAGLUTIDE. [Concomitant]
     Active Substance: DULAGLUTIDE
  6. RAMIPRIL. [Concomitant]
     Active Substance: RAMIPRIL
  7. ATORVASTATIN [Concomitant]
     Active Substance: ATORVASTATIN
  8. RITUXIMAB (UNKNOWN) [Suspect]
     Active Substance: RITUXIMAB
     Indication: RHEUMATOID ARTHRITIS
     Dosage: ON 14/NOV/2019, HE RECEIVED MOST RECENT DOSE OF RITUXIMAB PRIOR TO ADVERSE EVENT .
     Route: 065
     Dates: start: 201904
  9. LISPRO INSULIN [Concomitant]
     Active Substance: INSULIN LISPRO
  10. LERCANIDIPINE [Concomitant]
     Active Substance: LERCANIDIPINE
  11. FOLIC ACID. [Concomitant]
     Active Substance: FOLIC ACID

REACTIONS (1)
  - Interstitial lung disease [Not Recovered/Not Resolved]

NARRATIVE: CASE EVENT DATE: 202004
